FAERS Safety Report 5339259-5 (Version None)
Quarter: 2007Q2

REPORT INFORMATION
  Report Type: 
  Country: None (occurrence: None)
  Receive Date: 20070322
  Receipt Date: 20061110
  Transmission Date: 20071010
  Serious: Yes (Other)
  Sender: FDA-Public Use
  Company Number: 200614344BCC

PATIENT
  Age: 75 Year
  Sex: Female
  Weight: 63.5036 kg

DRUGS (9)
  1. ALEVE [Suspect]
     Indication: ACCIDENT
     Dosage: 440-660 MG, ORAL
     Route: 048
     Dates: end: 20061006
  2. ALEVE [Suspect]
     Indication: PAIN
     Dosage: 440-660 MG, ORAL
     Route: 048
     Dates: end: 20061006
  3. MOTRIN [Suspect]
  4. ATENOLOL [Concomitant]
  5. FUROSEMIDE [Concomitant]
  6. MIACALCIN [Concomitant]
  7. ACCUPRIL [Concomitant]
  8. NORVASC [Concomitant]
  9. PRAVACHOL [Concomitant]

REACTIONS (2)
  - FAECES DISCOLOURED [None]
  - HAEMATOCHEZIA [None]
